FAERS Safety Report 7647200-5 (Version None)
Quarter: 2011Q3

REPORT INFORMATION
  Report Type: 
  Country: None (occurrence: None)
  Receive Date: 20110801
  Receipt Date: 20110719
  Transmission Date: 20111222
  Serious: Yes (Hospitalization)
  Sender: FDA-Public Use
  Company Number: JP-ELI_LILLY_AND_COMPANY-JP201107003972

PATIENT
  Age: 5 Year
  Weight: 16.7 kg

DRUGS (4)
  1. ZYPREXA [Suspect]
     Dosage: UNK
     Route: 048
  2. CLONAZEPAM [Concomitant]
     Route: 048
  3. FLUNITRAZEPAM [Concomitant]
     Route: 048
  4. VALPROATE SODIUM [Concomitant]
     Route: 048

REACTIONS (3)
  - SOMNOLENCE [None]
  - DEPRESSED LEVEL OF CONSCIOUSNESS [None]
  - ACCIDENTAL EXPOSURE [None]
